FAERS Safety Report 7476346-X (Version None)
Quarter: 2011Q2

REPORT INFORMATION
  Report Type: 
  Country: None (occurrence: None)
  Receive Date: 20110512
  Receipt Date: 20110503
  Transmission Date: 20111010
  Serious: Yes (Hospitalization)
  Sender: FDA-Public Use
  Company Number: A0870223A

PATIENT
  Age: 56 Year
  Sex: Male
  Weight: 112.3 kg

DRUGS (3)
  1. ALTACE [Concomitant]
  2. AVANDAMET [Suspect]
     Route: 048
     Dates: start: 20070101, end: 20070401
  3. AVANDIA [Suspect]
     Dosage: 4MG PER DAY
     Route: 048
     Dates: start: 20070401, end: 20070601

REACTIONS (6)
  - AMNESIA [None]
  - TRANSIENT ISCHAEMIC ATTACK [None]
  - CEREBROVASCULAR ACCIDENT [None]
  - NEUROPATHY PERIPHERAL [None]
  - DEPRESSION [None]
  - ANXIETY [None]
